FAERS Safety Report 15645765 (Version 1)
Quarter: 2018Q4

REPORT INFORMATION
  Report Type: Spontaneous
  Country: IT (occurrence: IT)
  Receive Date: 20181121
  Receipt Date: 20181121
  Transmission Date: 20190205
  Serious: Yes (Other)
  Sender: FDA-Public Use
  Company Number: PHHY2018IT155298

PATIENT
  Age: 63 Year
  Sex: Female

DRUGS (1)
  1. METFORMIN [Suspect]
     Active Substance: METFORMIN HYDROCHLORIDE
     Indication: TYPE 2 DIABETES MELLITUS
     Dosage: 1500 MG, QD
     Route: 048
     Dates: start: 20170628

REACTIONS (2)
  - Therapy non-responder [Recovering/Resolving]
  - Hyperglycaemia [Recovering/Resolving]

NARRATIVE: CASE EVENT DATE: 20180920
